FAERS Safety Report 8876595 (Version 1)
Quarter: 2012Q4

REPORT INFORMATION
  Report Type: 
  Country: US (occurrence: US)
  Receive Date: 20121029
  Receipt Date: 20121029
  Transmission Date: 20130627
  Serious: Yes (Other)
  Sender: FDA-Public Use
  Company Number: US-PFIZER INC-2012268573

PATIENT
  Sex: Male

DRUGS (3)
  1. PRISTIQ [Suspect]
     Indication: DEPRESSION
     Dosage: 100 mg, 1x/day
     Route: 048
     Dates: start: 201010
  2. PRISTIQ [Suspect]
     Indication: BIPOLAR DISORDER
  3. LAMOTRIGINE [Concomitant]
     Indication: BIPOLAR DISORDER
     Dosage: UNK

REACTIONS (2)
  - Gallbladder pain [Recovering/Resolving]
  - Pain [Unknown]
